FAERS Safety Report 16769386 (Version 1)
Quarter: 2019Q3

REPORT INFORMATION
  Report Type: Spontaneous
  Country: US (occurrence: US)
  Receive Date: 20190903
  Receipt Date: 20190903
  Transmission Date: 20191005
  Serious: Yes (Other)
  Sender: FDA-Public Use
  Company Number: US-BAUSCH-BL-2019-025077

PATIENT
  Sex: Female
  Weight: 158.9 kg

DRUGS (3)
  1. EDECRIN [Concomitant]
     Active Substance: ETHACRYNIC ACID
     Indication: CARDIAC DISORDER
     Dosage: AT LEAST 15 YEARS
     Route: 048
  2. ETHACRYNIC ACID TABLET [Suspect]
     Active Substance: ETHACRYNIC ACID
     Indication: DIURETIC THERAPY
     Route: 048
  3. ETHACRYNIC ACID TABLET [Suspect]
     Active Substance: ETHACRYNIC ACID
     Indication: OEDEMA

REACTIONS (1)
  - Anaphylactic reaction [Recovered/Resolved]
